FAERS Safety Report 10006735 (Version 2)
Quarter: 2014Q2

REPORT INFORMATION
  Report Type: Spontaneous
  Country: US (occurrence: None)
  Receive Date: 20140311
  Receipt Date: 20140523
  Transmission Date: 20141212
  Serious: Yes (Other)
  Sender: FDA-Public Use
  Company Number: 1312646-1

PATIENT
  Age: 63 Year
  Sex: Male

DRUGS (6)
  1. NOSTRILLA NASAL DECONGESTANT ORIGINAL FAST RELIEF-12 HOUR [Suspect]
     Indication: NASAL CONGESTION
     Dosage: SPRAYED NASALLY TWICE DAILY
     Route: 045
  2. LOVISTATIN [Concomitant]
  3. TRAZODONE [Concomitant]
  4. VALIUM [Concomitant]
  5. FLEXORIL [Concomitant]
  6. HYDROCODONE [Concomitant]

REACTIONS (5)
  - Nasal discomfort [None]
  - Rhinorrhoea [None]
  - Lacrimation increased [None]
  - Anosmia [None]
  - Ageusia [None]
